FAERS Safety Report 8538067-1 (Version None)
Quarter: 2012Q3

REPORT INFORMATION
  Report Type: 
  Country: None (occurrence: None)
  Receive Date: 20120725
  Receipt Date: 20120712
  Transmission Date: 20120928
  Serious: Yes (Hospitalization, Other)
  Sender: FDA-Public Use
  Company Number: NL-PFIZER INC-2011070763

PATIENT
  Age: 48 Year
  Sex: Male
  Weight: 86 kg

DRUGS (7)
  1. TEMSIROLIMUS [Suspect]
     Indication: GLIOBLASTOMA
     Dosage: 15 MG, WEEKLY
     Route: 042
     Dates: start: 20101129, end: 20110323
  2. DEXAMETHASONE [Concomitant]
     Indication: PREMEDICATION
     Route: 042
     Dates: start: 20110322, end: 20110322
  3. ZANTAC [Concomitant]
     Indication: PREMEDICATION
     Route: 042
     Dates: start: 20110322, end: 20110322
  4. CLEMASTINE FUMARATE [Concomitant]
     Route: 048
  5. DEPAKENE [Concomitant]
     Route: 048
  6. CLEMASTINE FUMARATE [Concomitant]
     Route: 048
  7. DEPAKENE [Concomitant]
     Indication: EPILEPSY
     Route: 048

REACTIONS (2)
  - PNEUMOTHORAX [None]
  - CANDIDA PNEUMONIA [None]
